FAERS Safety Report 8405283-9 (Version None)
Quarter: 2012Q2

REPORT INFORMATION
  Report Type: 
  Country: None (occurrence: None)
  Receive Date: 20120323
  Receipt Date: 20110503
  Transmission Date: 20120825
  Serious: Yes (Other)
  Sender: FDA-Public Use
  Company Number: 163-21880-11050275

PATIENT
  Age: 56 Year
  Sex: Female

DRUGS (6)
  1. VELCADE [Concomitant]
  2. DEXAMETHASONE [Concomitant]
  3. REVLIMID [Suspect]
     Indication: MULTIPLE MYELOMA
     Dosage: 15 MG, QD, PO, 5 MG, QD, PO,  10 MG, QD, PO
     Route: 048
     Dates: start: 20090511, end: 20090530
  4. REVLIMID [Suspect]
     Indication: MULTIPLE MYELOMA
     Dosage: 15 MG, QD, PO, 5 MG, QD, PO,  10 MG, QD, PO
     Route: 048
     Dates: start: 20090810, end: 20091101
  5. REVLIMID [Suspect]
     Indication: MULTIPLE MYELOMA
     Dosage: 15 MG, QD, PO, 5 MG, QD, PO,  10 MG, QD, PO
     Route: 048
     Dates: start: 20091110, end: 20100101
  6. REVLIMID [Suspect]
     Indication: MULTIPLE MYELOMA
     Dosage: 15 MG, QD, PO, 5 MG, QD, PO,  10 MG, QD, PO
     Route: 048
     Dates: start: 20090531, end: 20090715

REACTIONS (1)
  - PANCYTOPENIA [None]
